FAERS Safety Report 9603768 (Version 2)
Quarter: 2013Q4

REPORT INFORMATION
  Report Type: Spontaneous
  Country: US (occurrence: US)
  Receive Date: 20131007
  Receipt Date: 20131124
  Transmission Date: 20140711
  Serious: No
  Sender: FDA-Public Use
  Company Number: US-B.I. PHARMACEUTICALS,INC./RIDGEFIELD-2013-BI-30530BP

PATIENT
  Age: 72 Year
  Sex: Male

DRUGS (1)
  1. ATROVENT [Suspect]
     Route: 055

REACTIONS (1)
  - Drug ineffective [Recovered/Resolved]
